FAERS Safety Report 8259668-4 (Version None)
Quarter: 2012Q2

REPORT INFORMATION
  Report Type: 
  Country: None (occurrence: None)
  Receive Date: 20120403
  Receipt Date: 20111220
  Transmission Date: 20120825
  Serious: No
  Sender: FDA-Public Use
  Company Number: 214681USA

PATIENT
  Age: 22 Year
  Sex: Female
  Weight: 70.3075 kg

DRUGS (2)
  1. MIFEPRISTONE (MIFEPREX) [Suspect]
     Indication: PRODUCT USED FOR UNKNOWN INDICATION
  2. PLAN B ONE-STEP [Suspect]
     Indication: CONTRACEPTION
     Dosage: 1.5 MG (1.5 MG, 1 IN 1 D), ORAL, 1.5 MG (1.5 MG, 1 IN 1 D), ORAL, 1.5 MG (1.5 MG, 1 IN 1 D), ORAL
     Route: 048
     Dates: start: 20111214, end: 20111214

REACTIONS (5)
  - PELVIC PAIN [None]
  - HAEMORRHAGE [None]
  - BREAST TENDERNESS [None]
  - MUSCLE SPASMS [None]
  - HOT FLUSH [None]
